FAERS Safety Report 4360679-X (Version None)
Quarter: 2004Q2

REPORT INFORMATION
  Report Type: 
  Country: None (occurrence: None)
  Receive Date: 20040519
  Receipt Date: 20040519
  Transmission Date: 20050107
  Serious: No
  Sender: FDA-Public Use
  Company Number: None

PATIENT
  Age: 78 Year
  Sex: Male

DRUGS (1)
  1. RISEDRONATE [Suspect]
     Indication: OSTEOPOROSIS
     Dosage: 35 MG PO Q WEEK
     Route: 048
     Dates: start: 20040102, end: 20040218

REACTIONS (1)
  - GASTROOESOPHAGEAL REFLUX DISEASE [None]
